FAERS Safety Report 15653874 (Version 1)
Quarter: 2018Q4

REPORT INFORMATION
  Report Type: Spontaneous
  Country: US (occurrence: US)
  Receive Date: 20181124
  Receipt Date: 20181124
  Transmission Date: 20190205
  Serious: No
  Sender: FDA-Public Use
  Company Number: None

PATIENT
  Age: 34 Year
  Sex: Female
  Weight: 76.5 kg

DRUGS (8)
  1. KETOCONAZOLE 2% SHAMPOO [Suspect]
     Active Substance: KETOCONAZOLE
     Indication: CUTANEOUS LUPUS ERYTHEMATOSUS
     Dosage: ?          QUANTITY:1 BOTTLE 120 ML;OTHER FREQUENCY:2-3X PER WEEK;?
     Route: 061
     Dates: start: 20181115, end: 20181123
  2. KETOCONAZOLE 2% SHAMPOO [Suspect]
     Active Substance: KETOCONAZOLE
     Indication: ALOPECIA
     Dosage: ?          QUANTITY:1 BOTTLE 120 ML;OTHER FREQUENCY:2-3X PER WEEK;?
     Route: 061
     Dates: start: 20181115, end: 20181123
  3. APPLE CIDER VINEGAR [Concomitant]
     Active Substance: APPLE CIDER VINEGAR
  4. GARDEN OF LIFE PROBIOTICS [Concomitant]
  5. HAIR FINITY VITAMINS [Concomitant]
  6. CLOBETASOL [Concomitant]
     Active Substance: CLOBETASOL
  7. QUINACRINE [Concomitant]
     Active Substance: QUINACRINE
  8. KETOCONAZOLE 2% SHAMPOO [Suspect]
     Active Substance: KETOCONAZOLE
     Indication: DRY SKIN
     Dosage: ?          QUANTITY:1 BOTTLE 120 ML;OTHER FREQUENCY:2-3X PER WEEK;?
     Route: 061
     Dates: start: 20181115, end: 20181123

REACTIONS (5)
  - Hair texture abnormal [None]
  - Trichorrhexis [None]
  - Furuncle [None]
  - Acne [None]
  - Hair disorder [None]

NARRATIVE: CASE EVENT DATE: 20181117
